FAERS Safety Report 6175082-X (Version None)
Quarter: 2009Q2

REPORT INFORMATION
  Report Type: 
  Country: None (occurrence: None)
  Receive Date: 20090430
  Receipt Date: 20090223
  Transmission Date: 20091009
  Serious: No
  Sender: FDA-Public Use
  Company Number: US-ASTRAZENECA-2009UW04931

PATIENT
  Age: 68 Year
  Sex: Male
  Weight: 93 kg

DRUGS (8)
  1. NEXIUM [Suspect]
     Indication: GASTROOESOPHAGEAL REFLUX DISEASE
     Route: 048
     Dates: start: 20040101
  2. TOPROL-XL [Concomitant]
     Indication: HYPERTENSION
     Route: 048
  3. BENICAR [Concomitant]
     Indication: HYPERTENSION
  4. NIASPAN [Concomitant]
  5. AVODART [Concomitant]
  6. UROXATRAL [Concomitant]
  7. NAPROXEN [Concomitant]
  8. SYNTHROID [Concomitant]

REACTIONS (1)
  - FAECES DISCOLOURED [None]
